FAERS Safety Report 16904943 (Version 1)
Quarter: 2019Q4

REPORT INFORMATION
  Report Type: Spontaneous
  Country: CH (occurrence: CH)
  Receive Date: 20191010
  Receipt Date: 20191010
  Transmission Date: 20200122
  Serious: Yes (Hospitalization)
  Sender: FDA-Public Use
  Company Number: CH-ASTRAZENECA-2019SF40470

PATIENT
  Age: 24900 Day
  Sex: Female

DRUGS (18)
  1. NEXIUM [Suspect]
     Active Substance: ESOMEPRAZOLE MAGNESIUM
     Route: 048
  2. DALMADORM [Concomitant]
     Active Substance: FLURAZEPAM HYDROCHLORIDE
  3. ASPIRIN CARDIO [Concomitant]
     Active Substance: ASPIRIN
  4. LISINOPRIL. [Concomitant]
     Active Substance: LISINOPRIL
  5. LUVIT D3 [Concomitant]
     Active Substance: CHOLECALCIFEROL
     Dates: start: 20190823
  6. VENLAFAXINE [Suspect]
     Active Substance: VENLAFAXINE HYDROCHLORIDE
     Route: 048
  7. PRAVASTATIN. [Concomitant]
     Active Substance: PRAVASTATIN
  8. GLUCOPHAGE [Suspect]
     Active Substance: METFORMIN HYDROCHLORIDE
     Route: 048
  9. IMUREK [Suspect]
     Active Substance: AZATHIOPRINE
     Route: 048
     Dates: start: 201712
  10. TORASEMIDE [Concomitant]
     Active Substance: TORSEMIDE
  11. ACIDUM FOLICUM [Concomitant]
     Active Substance: FOLIC ACID
     Route: 048
     Dates: end: 20190922
  12. CALCIMAGON D3 [Concomitant]
     Active Substance: CALCIUM\CHOLECALCIFEROL
  13. BELOC ZOK [Concomitant]
     Active Substance: METOPROLOL SUCCINATE
  14. SEREVENT DISKUS [Concomitant]
     Active Substance: SALMETEROL XINAFOATE
  15. IRFEN [Concomitant]
     Active Substance: IBUPROFEN
     Dosage: AS NECESSARY
  16. QUETIAPINE. [Suspect]
     Active Substance: QUETIAPINE
     Route: 048
  17. TRAMAL [Concomitant]
     Active Substance: TRAMADOL
     Dosage: AS NECESSARY
  18. PREDNISONE. [Concomitant]
     Active Substance: PREDNISONE
     Dosage: 1.0MG/KG UNKNOWN
     Dates: start: 201712

REACTIONS (1)
  - Pancreatitis acute [Not Recovered/Not Resolved]

NARRATIVE: CASE EVENT DATE: 20190905
